FAERS Safety Report 11158597 (Version 1)
Quarter: 2015Q2

REPORT INFORMATION
  Report Type: Spontaneous
  Country: US (occurrence: US)
  Receive Date: 20150603
  Receipt Date: 20150603
  Transmission Date: 20150821
  Serious: Yes (Other)
  Sender: FDA-Public Use
  Company Number: US-LUNDBECK-DKLU1113117

PATIENT
  Age: 74 Year
  Sex: Female

DRUGS (1)
  1. NORTHERA [Suspect]
     Active Substance: DROXIDOPA
     Indication: AUTONOMIC NERVOUS SYSTEM IMBALANCE
     Route: 048
     Dates: start: 20150403, end: 20150512

REACTIONS (5)
  - Somnolence [Unknown]
  - Amnesia [Unknown]
  - Fatigue [Unknown]
  - Fall [Unknown]
  - Cystitis [Unknown]

NARRATIVE: CASE EVENT DATE: 20150501
